FAERS Safety Report 7040856-X (Version None)
Quarter: 2010Q4

REPORT INFORMATION
  Report Type: 
  Country: None (occurrence: None)
  Receive Date: 20101013
  Receipt Date: 20100830
  Transmission Date: 20110411
  Serious: Yes (Other)
  Sender: FDA-Public Use
  Company Number: US-BAYER-201013357NA

PATIENT
  Age: 52 Year
  Sex: Female
  Weight: 73 kg

DRUGS (34)
  1. YASMIN [Suspect]
     Indication: PREMENSTRUAL SYNDROME
     Route: 048
     Dates: start: 20030514, end: 20061001
  2. YAZ [Suspect]
     Indication: PREMENSTRUAL SYNDROME
     Route: 048
     Dates: start: 20061101, end: 20080401
  3. IBUPROFEN [Concomitant]
     Indication: MIGRAINE
     Dates: start: 20080101
  4. MOTRIN [Concomitant]
     Indication: MIGRAINE
     Dates: start: 20080101
  5. LEVAQUIN [Concomitant]
  6. ADVAIR DISKUS 100/50 [Concomitant]
     Indication: ASTHMA
     Dates: start: 19900101
  7. SINGULAIR [Concomitant]
     Indication: ASTHMA
     Dates: start: 19900101
  8. ALBUTEROL [Concomitant]
     Indication: ASTHMA
     Dates: start: 19900101
  9. TEMAZEPAM [Concomitant]
     Indication: ASTHMA
  10. PLAQUENIL [Concomitant]
     Indication: SYSTEMIC LUPUS ERYTHEMATOSUS
     Dates: start: 20060101
  11. MERIDIA [Concomitant]
     Indication: WEIGHT DECREASED
     Dates: start: 20030327, end: 20090504
  12. PHENTERMINE [Concomitant]
     Indication: WEIGHT DECREASED
     Dates: start: 20090101
  13. AMBIEN [Concomitant]
     Indication: SLEEP DISORDER
     Dates: start: 20080101
  14. AMITRIPTYLINE HCL [Concomitant]
     Indication: SLEEP DISORDER
     Dates: start: 20080101
  15. ROZEREM [Concomitant]
     Indication: SLEEP DISORDER
     Dates: start: 20080101
  16. LUNESTA [Concomitant]
     Indication: SLEEP DISORDER
     Dates: start: 20080101
  17. ZYRTEC [Concomitant]
     Indication: SLEEP DISORDER
     Dates: start: 20080101
  18. CLARITEX [Concomitant]
     Indication: SEASONAL ALLERGY
     Dates: start: 20000101, end: 20000101
  19. WOMENS ULTRA MEGA [Concomitant]
  20. ESTER C [Concomitant]
  21. CALCIUM [Concomitant]
  22. MAGNESIUM [Concomitant]
  23. VITAMIN D [Concomitant]
  24. IRON [Concomitant]
  25. LOVAZA [Concomitant]
  26. CHROMIUM CHLORIDE [Concomitant]
  27. BIOTON [Concomitant]
  28. COENZYME Q10 [Concomitant]
  29. ZINC [Concomitant]
  30. FLAXSEED OIL [Concomitant]
  31. PRIMROSE OIL [Concomitant]
  32. ZYRTEC [Concomitant]
     Indication: HYPERSENSITIVITY
  33. FLONASE [Concomitant]
     Indication: HYPERSENSITIVITY
  34. CLARINEX [Concomitant]
     Indication: HYPERSENSITIVITY

REACTIONS (3)
  - CEREBRAL INFARCTION [None]
  - HEMICEPHALALGIA [None]
  - MUSCULAR WEAKNESS [None]
